FAERS Safety Report 8205414-X (Version None)
Quarter: 2012Q1

REPORT INFORMATION
  Report Type: 
  Country: None (occurrence: None)
  Receive Date: 20120313
  Receipt Date: 20120307
  Transmission Date: 20120608
  Serious: Yes (Hospitalization, Other)
  Sender: FDA-Public Use
  Company Number: US-MERCK-1110USA00466

PATIENT
  Age: 73 Year
  Sex: Female
  Weight: 49 kg

DRUGS (4)
  1. FOSAMAX [Suspect]
     Indication: OSTEOPOROSIS
     Route: 048
     Dates: start: 19990101
  2. VITAMINS (UNSPECIFIED) [Concomitant]
     Route: 065
     Dates: start: 20010101
  3. FOSAMAX PLUS D [Suspect]
     Indication: OSTEOPOROSIS
     Route: 048
     Dates: start: 20080811, end: 20090101
  4. VITAMIN D (UNSPECIFIED) [Concomitant]
     Route: 065
     Dates: start: 20100101

REACTIONS (71)
  - CHRONIC OBSTRUCTIVE PULMONARY DISEASE [None]
  - PLEURAL EFFUSION [None]
  - DELIRIUM [None]
  - DIARRHOEA [None]
  - CHEST PAIN [None]
  - CARDIOMEGALY [None]
  - ARTHRITIS [None]
  - FEMUR FRACTURE [None]
  - COUGH [None]
  - CONFUSIONAL STATE [None]
  - TOOTH DISORDER [None]
  - VOMITING [None]
  - MYALGIA [None]
  - MUSCULAR WEAKNESS [None]
  - FRACTURE NONUNION [None]
  - HAEMATOCHEZIA [None]
  - ARTHRALGIA [None]
  - ATELECTASIS [None]
  - PNEUMONIA [None]
  - HYPERSOMNIA [None]
  - PRIMARY CEREBELLAR DEGENERATION [None]
  - VITAMIN B12 DEFICIENCY [None]
  - PAIN IN EXTREMITY [None]
  - MACROCYTOSIS [None]
  - HAEMATEMESIS [None]
  - FATIGUE [None]
  - DECREASED APPETITE [None]
  - OEDEMA PERIPHERAL [None]
  - CATARACT [None]
  - PULMONARY HYPERTENSION [None]
  - TREATMENT NONCOMPLIANCE [None]
  - INAPPROPRIATE SCHEDULE OF DRUG ADMINISTRATION [None]
  - BACK PAIN [None]
  - NEPHROLITHIASIS [None]
  - HYPERCOAGULATION [None]
  - GAIT DISTURBANCE [None]
  - CEREBRAL ATROPHY [None]
  - MENTAL IMPAIRMENT [None]
  - MAJOR DEPRESSION [None]
  - SKIN CANCER [None]
  - ESSENTIAL HYPERTENSION [None]
  - CHOLELITHIASIS [None]
  - INTERVERTEBRAL DISC DEGENERATION [None]
  - SENILE DEMENTIA [None]
  - NECK PAIN [None]
  - HYPOXIA [None]
  - HYPOKALAEMIA [None]
  - HAEMARTHROSIS [None]
  - SINUS BRADYCARDIA [None]
  - ALCOHOL ABUSE [None]
  - ALCOHOL DETOXIFICATION [None]
  - BLOOD POTASSIUM DECREASED [None]
  - TRICUSPID VALVE INCOMPETENCE [None]
  - IRRITABILITY [None]
  - INTERNATIONAL NORMALISED RATIO INCREASED [None]
  - GASTROOESOPHAGEAL REFLUX DISEASE [None]
  - HAEMATURIA [None]
  - DEMENTIA [None]
  - HYPOCALCAEMIA [None]
  - SOFT TISSUE HAEMORRHAGE [None]
  - ULTRASOUND SCAN ABNORMAL [None]
  - DEEP VEIN THROMBOSIS [None]
  - FALL [None]
  - CONTUSION [None]
  - URINARY TRACT INFECTION [None]
  - ANAEMIA VITAMIN B12 DEFICIENCY [None]
  - BREAST MASS [None]
  - CEREBRAL MICROANGIOPATHY [None]
  - OSTEOPENIA [None]
  - INSOMNIA [None]
  - DIASTOLIC DYSFUNCTION [None]
